FAERS Safety Report 18783496 (Version 1)
Quarter: 2021Q1

REPORT INFORMATION
  Report Type: Spontaneous
  Country: US (occurrence: US)
  Receive Date: 20210125
  Receipt Date: 20210125
  Transmission Date: 20210419
  Serious: Yes (Other)
  Sender: FDA-Public Use
  Company Number: US-BAYER-2021-038071

PATIENT
  Age: 40 Year
  Sex: Female

DRUGS (2)
  1. MIRENA [Suspect]
     Active Substance: LEVONORGESTREL
     Indication: CONTRACEPTION
     Dosage: 20 ?G PER DAY, CONTINUOUSLY
     Route: 015
     Dates: start: 201805
  2. VITAMINS NOS [Concomitant]
     Active Substance: VITAMINS
     Dosage: UNK
     Dates: start: 2006

REACTIONS (10)
  - Abortion missed [None]
  - Complication of pregnancy [None]
  - Vaginal discharge [None]
  - Urinary tract infection [None]
  - Ovarian cyst [None]
  - Drug ineffective [None]
  - Abdominal pain lower [None]
  - Pregnancy with contraceptive device [Recovered/Resolved]
  - Vulvovaginal pruritus [None]
  - Haemorrhage in pregnancy [None]

NARRATIVE: CASE EVENT DATE: 201805
